FAERS Safety Report 10759428 (Version 2)
Quarter: 2015Q2

REPORT INFORMATION
  Report Type: Spontaneous
  Country: US (occurrence: US)
  Receive Date: 20150203
  Receipt Date: 20150522
  Transmission Date: 20150821
  Serious: No
  Sender: FDA-Public Use
  Company Number: US-GLAXOSMITHKLINE-US2015GSK006465

PATIENT
  Age: 70 Year
  Sex: Male

DRUGS (4)
  1. BENLYSTA [Suspect]
     Active Substance: BELIMUMAB
     Dosage: UNK
     Route: 042
     Dates: start: 201409
  2. BENLYSTA [Suspect]
     Active Substance: BELIMUMAB
     Indication: SYSTEMIC LUPUS ERYTHEMATOSUS
     Dosage: UNK
     Route: 042
     Dates: start: 201410
  3. PROPRANOLOL [Concomitant]
     Active Substance: PROPRANOLOL\PROPRANOLOL HYDROCHLORIDE
  4. LORAZEPAM. [Concomitant]
     Active Substance: LORAZEPAM

REACTIONS (17)
  - Nasal congestion [Unknown]
  - White blood cell count decreased [Unknown]
  - Musculoskeletal stiffness [Unknown]
  - Emergency care examination [Unknown]
  - Movement disorder [Unknown]
  - Myalgia [Unknown]
  - Rhinorrhoea [Unknown]
  - Insomnia [Unknown]
  - Muscle spasms [Recovering/Resolving]
  - Gait disturbance [Unknown]
  - Dysuria [Unknown]
  - Muscle spasms [Not Recovered/Not Resolved]
  - Vascular rupture [Unknown]
  - Asthenia [Unknown]
  - Drug ineffective [Unknown]
  - Diarrhoea [Unknown]
  - Hypertension [Unknown]

NARRATIVE: CASE EVENT DATE: 201504
